FAERS Safety Report 15961974 (Version 1)
Quarter: 2019Q1

REPORT INFORMATION
  Report Type: Spontaneous
  Country: IE (occurrence: IE)
  Receive Date: 20190214
  Receipt Date: 20190214
  Transmission Date: 20190417
  Serious: Yes (Other)
  Sender: FDA-Public Use
  Company Number: IE-LINDE-IE-LHC-2019032

PATIENT
  Sex: Female
  Weight: 1.5 kg

DRUGS (2)
  1. OXYGEN (GENERIC) [Suspect]
     Active Substance: OXYGEN
     Indication: FOETAL EXPOSURE DURING PREGNANCY
     Route: 064
  2. OXYGEN (GENERIC) [Suspect]
     Active Substance: OXYGEN
     Indication: FOETAL EXPOSURE DURING PREGNANCY
     Route: 064

REACTIONS (3)
  - Low birth weight baby [Unknown]
  - Premature baby [Unknown]
  - Foetal exposure during pregnancy [Unknown]
